FAERS Safety Report 23962300 (Version 1)
Quarter: 2024Q2

REPORT INFORMATION
  Report Type: Spontaneous
  Country: US (occurrence: None)
  Receive Date: 20240610
  Receipt Date: 20240610
  Transmission Date: 20240716
  Serious: Yes (Hospitalization)
  Sender: FDA-Public Use
  Company Number: None

PATIENT
  Age: 56 Year
  Sex: Male
  Weight: 79.2 kg

DRUGS (3)
  1. ICODEXTRIN [Suspect]
     Active Substance: ICODEXTRIN
     Indication: Dialysis
     Dosage: OTHER QUANTITY : 33.8 OUNCE(S)?FREQUENCY : DAILY?OTHER ROUTE : PERITONEAL DIALYSIS?
     Route: 050
     Dates: start: 20240601, end: 20240610
  2. VELPHORO [Concomitant]
     Active Substance: SUCROFERRIC OXYHYDROXIDE
  3. CALCITRIOL [Concomitant]
     Active Substance: CALCITRIOL

REACTIONS (5)
  - Dialysis [None]
  - Dyspnoea [None]
  - Dizziness [None]
  - Chest discomfort [None]
  - Chest pain [None]

NARRATIVE: CASE EVENT DATE: 20240601
